FAERS Safety Report 15385751 (Version 5)
Quarter: 2019Q4

REPORT INFORMATION
  Report Type: Spontaneous
  Country: JP (occurrence: JP)
  Receive Date: 20180914
  Receipt Date: 20191226
  Transmission Date: 20200122
  Serious: Yes (Death, Hospitalization, Other)
  Sender: FDA-Public Use
  Company Number: JP-BRISTOL-MYERS SQUIBB COMPANY-BMS-2018-084286

PATIENT
  Age: 60 Year
  Sex: Male
  Weight: 63.7 kg

DRUGS (3)
  1. NAIXAN [NAPROXEN] [Concomitant]
     Active Substance: NAPROXEN
     Indication: PYREXIA
     Dosage: 200 MG, Q8H
     Route: 048
     Dates: start: 20180706, end: 20180820
  2. OPDIVO [Suspect]
     Active Substance: NIVOLUMAB
     Indication: HEAD AND NECK CANCER
     Dosage: 3 MG/KG, UNK
     Route: 041
     Dates: start: 20180717, end: 20180717
  3. GLYCYRON [DL-METHIONINE;GLYCINE;GLYCYRRHIZIC ACID, AMMONIUM SALT] [Concomitant]
     Indication: LIVER DISORDER
     Dosage: 3 DF, Q8H
     Route: 048
     Dates: start: 20180712, end: 20180806

REACTIONS (4)
  - Dermatomyositis [Not Recovered/Not Resolved]
  - Malignant neoplasm progression [Fatal]
  - Gastric ulcer [Unknown]
  - Constipation [Unknown]

NARRATIVE: CASE EVENT DATE: 20180723
